FAERS Safety Report 9798122 (Version 1)
Quarter: 2014Q1

REPORT INFORMATION
  Report Type: Spontaneous
  Country: TR (occurrence: TR)
  Receive Date: 20140106
  Receipt Date: 20140106
  Transmission Date: 20141002
  Serious: Yes (Other)
  Sender: FDA-Public Use
  Company Number: TR-JNJFOC-20131218285

PATIENT
  Sex: 0

DRUGS (3)
  1. RISPERIDONE [Suspect]
     Indication: SCHIZOPHRENIA
     Dosage: DOSE RANGED BETWEEN 2 AND 8??MG/DAY, WITH A MEAN DOSE OF 5.54 MG/DAY.
     Route: 065
  2. ARIPIPRAZOLE [Suspect]
     Indication: SCHIZOPHRENIA
     Dosage: DOSAGE RANGED BETWEEN 10 AND 30 MG/ DAY, WITH A MEAN DOSE OF 20 MG/ DAY
     Route: 065
  3. QUETIAPINE [Suspect]
     Indication: SCHIZOPHRENIA
     Dosage: DOSAGE RANGED BETWEEN 400 AND 1200 MG/ DAY WITH A MEAN DOSE OF 705.26 MG/ DAY
     Route: 065

REACTIONS (8)
  - Epilepsy [Unknown]
  - Tardive dyskinesia [Unknown]
  - Enuresis [Unknown]
  - Akathisia [Unknown]
  - Extrapyramidal disorder [Unknown]
  - Facial spasm [Unknown]
  - Hypotension [Unknown]
  - Weight increased [Unknown]
